FAERS Safety Report 4892715-6 (Version None)
Quarter: 2006Q1

REPORT INFORMATION
  Report Type: 
  Country: None (occurrence: None)
  Receive Date: 20060126
  Receipt Date: 20060118
  Transmission Date: 20060701
  Serious: Yes (Other)
  Sender: FDA-Public Use
  Company Number: US-AVENTIS-200610581US

PATIENT
  Sex: Male
  Weight: 127.26 kg

DRUGS (4)
  1. KETEK [Suspect]
     Indication: BRONCHITIS
     Route: 048
     Dates: start: 20051229, end: 20051231
  2. ALLOPURINOL [Concomitant]
     Indication: BLOOD URIC ACID
  3. PAXIL [Concomitant]
     Indication: MIGRAINE
  4. LOTREL [Concomitant]
     Indication: HYPERTENSION
     Dosage: DOSE: 5/10

REACTIONS (5)
  - ATRIAL FIBRILLATION [None]
  - CHEST PAIN [None]
  - DYSPNOEA [None]
  - PALPITATIONS [None]
  - VENTRICULAR EXTRASYSTOLES [None]
